FAERS Safety Report 7423670-2 (Version None)
Quarter: 2011Q2

REPORT INFORMATION
  Report Type: 
  Country: None (occurrence: None)
  Receive Date: 20110411
  Receipt Date: 20110328
  Transmission Date: 20111010
  Serious: Yes (Hospitalization)
  Sender: FDA-Public Use
  Company Number: DAV-AE-MTX-11-018

PATIENT
  Age: 24 Year
  Sex: Female

DRUGS (1)
  1. METHOTREXATE [Suspect]
     Indication: B-CELL LYMPHOMA
     Dosage: INTRATHECAL 20MG/2X WK
     Route: 037

REACTIONS (7)
  - FATIGUE [None]
  - ALOPECIA [None]
  - MARROW HYPERPLASIA [None]
  - PALLOR [None]
  - STEM CELL TRANSPLANT [None]
  - ANAEMIA MEGALOBLASTIC [None]
  - PLATELET COUNT DECREASED [None]
